FAERS Safety Report 8374986-7 (Version None)
Quarter: 2012Q2

REPORT INFORMATION
  Report Type: 
  Country: None (occurrence: None)
  Receive Date: 20120521
  Receipt Date: 20120514
  Transmission Date: 20120825
  Serious: Yes (Hospitalization)
  Sender: FDA-Public Use
  Company Number: US-ABBOTT-12P-163-0935444-00

PATIENT
  Sex: Female
  Weight: 88.53 kg

DRUGS (10)
  1. RAMIPRIL [Concomitant]
     Indication: HYPERTENSION
  2. WARFARIN SODIUM [Concomitant]
     Indication: CEREBROVASCULAR ACCIDENT
     Dates: end: 20120508
  3. NIFEDIPINE [Concomitant]
     Indication: HYPERTENSION
  4. WARFARIN SODIUM [Concomitant]
     Dates: start: 20120512
  5. NIASPAN [Concomitant]
     Indication: BLOOD TRIGLYCERIDES INCREASED
  6. TRILIPIX [Suspect]
     Indication: BLOOD CHOLESTEROL INCREASED
     Dates: start: 20070101
  7. METFORMIN HCL [Concomitant]
     Indication: DIABETES MELLITUS
  8. CRESTOR [Concomitant]
     Indication: BLOOD CHOLESTEROL INCREASED
  9. NIASPAN [Concomitant]
     Indication: BLOOD CHOLESTEROL INCREASED
  10. TRILIPIX [Suspect]
     Indication: BLOOD TRIGLYCERIDES INCREASED

REACTIONS (3)
  - HYPOAESTHESIA [None]
  - PARAESTHESIA [None]
  - PROTHROMBIN TIME PROLONGED [None]
